FAERS Safety Report 9709960 (Version 1)
Quarter: 2013Q4

REPORT INFORMATION
  Report Type: Spontaneous
  Country: US (occurrence: US)
  Receive Date: 20131126
  Receipt Date: 20131126
  Transmission Date: 20140711
  Serious: Yes (Other)
  Sender: FDA-Public Use
  Company Number: US-JNJFOC-20131114735

PATIENT
  Age: 65 Year
  Sex: Female
  Weight: 72.58 kg

DRUGS (4)
  1. XARELTO [Suspect]
     Indication: THROMBOSIS
     Route: 048
     Dates: start: 20131023
  2. XARELTO [Suspect]
     Indication: THROMBOSIS
     Route: 048
     Dates: start: 20131014, end: 20131022
  3. DILTIAZEM [Concomitant]
     Indication: BLOOD PRESSURE
     Dosage: ABOUT 5 YEARS AGO
     Route: 048
  4. FLONASE [Concomitant]
     Indication: SINUS CONGESTION
     Dosage: ABOUT 5 YEARS AGO
     Route: 065

REACTIONS (5)
  - Renal haemorrhage [Recovered/Resolved]
  - Gastric haemorrhage [Recovered/Resolved]
  - Abdominal pain [Recovered/Resolved]
  - Appetite disorder [Not Recovered/Not Resolved]
  - Abdominal discomfort [Recovered/Resolved]
